FAERS Safety Report 7826054-8 (Version None)
Quarter: 2011Q4

REPORT INFORMATION
  Report Type: 
  Country: None (occurrence: None)
  Receive Date: 20111019
  Receipt Date: 20111010
  Transmission Date: 20120403
  Serious: Yes (Other)
  Sender: FDA-Public Use
  Company Number: US-ASTRAZENECA-2011SE55774

PATIENT
  Sex: Female
  Weight: 71.2 kg

DRUGS (29)
  1. TRICOR [Concomitant]
     Route: 048
     Dates: end: 20110912
  2. ASPIRIN [Concomitant]
     Route: 048
  3. ARAVA [Concomitant]
     Route: 048
  4. SOMA [Concomitant]
     Route: 048
  5. NEXIUM [Concomitant]
     Route: 048
  6. VOLTAREN EXTERNAL GEL [Concomitant]
     Dosage: TWO TIMES A DAY AS NEEDED
  7. CENTRUM SILVER [Concomitant]
     Route: 048
  8. LEVOTHYROXINE SODIUM [Concomitant]
     Route: 048
     Dates: end: 20110919
  9. CLONIDINE HCL [Concomitant]
     Route: 048
  10. TRAMADOL HCL [Concomitant]
     Indication: PAIN
     Dosage: 50 MG FOUR TIMES A DAY AS NEEDED
     Route: 048
  11. PATANASE [Concomitant]
     Dosage: 2 SPRAYS TWICE DAILY
     Route: 045
  12. CRESTOR [Suspect]
     Route: 048
     Dates: end: 20110912
  13. CELEXA [Concomitant]
     Route: 048
  14. VICODIN [Concomitant]
     Dosage: 5-500 MG, HALF-1 TABLET SIX TIMES AS REQUIRED
     Route: 048
  15. METHOTREXATE SODIUM [Concomitant]
     Route: 048
  16. PREMARIN [Concomitant]
     Route: 048
  17. METOPROLOL TARTRATE [Concomitant]
     Route: 048
  18. VERAPAMIL HCL CR [Concomitant]
     Route: 048
  19. BACTROBAN [Concomitant]
     Dosage: TWO TIMES A DAY AS REQUIRED
  20. FLONASE [Concomitant]
     Dosage: 50 MCG/ACT, 2 SPRAYS Q NOST Q DAY
     Route: 045
  21. LEVOTHROID [Concomitant]
     Route: 048
     Dates: start: 20110919
  22. CRESTOR [Suspect]
     Indication: HYPERCHOLESTEROLAEMIA
     Route: 048
     Dates: start: 20090908, end: 20110901
  23. MELOXICAM [Concomitant]
     Route: 048
  24. CALTRATE 600+D [Concomitant]
     Dosage: 600-400 MG-UNIT 1 EVERY DAY
     Route: 048
  25. DIOVAN HCT [Concomitant]
     Dosage: 320-25 MG, 1 EVERY DAY
     Route: 048
  26. LIMBREL [Concomitant]
     Dosage: 1-2 DAILY
     Route: 048
  27. NASONEX [Concomitant]
     Dosage: 50 MCG/ACT, 2 SPRAYS NASALLY DAILY
     Route: 045
  28. XANAX [Concomitant]
     Dosage: 1 MG TWO TIMES A DAY AS NEEDED
     Route: 048
  29. AMITRIPTYLINE HCL [Concomitant]
     Indication: SLEEP DISORDER
     Dosage: 1-2 TABLET AT NIGHT
     Route: 048

REACTIONS (27)
  - BACK PAIN [None]
  - BLOOD CREATINE PHOSPHOKINASE INCREASED [None]
  - ANGINA PECTORIS [None]
  - HEADACHE [None]
  - MYALGIA [None]
  - BLOOD POTASSIUM DECREASED [None]
  - HEPATIC ENZYME INCREASED [None]
  - OROPHARYNGEAL PAIN [None]
  - ASTHENIA [None]
  - DECREASED APPETITE [None]
  - HIATUS HERNIA [None]
  - MUSCLE ENZYME INCREASED [None]
  - PYREXIA [None]
  - ABDOMINAL PAIN LOWER [None]
  - EAR PAIN [None]
  - FATIGUE [None]
  - ANAEMIA [None]
  - CHILLS [None]
  - CONSTIPATION [None]
  - TONGUE DISORDER [None]
  - HYPERTENSIVE HEART DISEASE [None]
  - GAIT DISTURBANCE [None]
  - MUSCULAR WEAKNESS [None]
  - DIZZINESS [None]
  - BLOOD SODIUM DECREASED [None]
  - DIVERTICULUM [None]
  - HYPOTHYROIDISM [None]
